FAERS Safety Report 13303606 (Version 1)
Quarter: 2017Q1

REPORT INFORMATION
  Report Type: Spontaneous
  Country: VE (occurrence: VE)
  Receive Date: 20170307
  Receipt Date: 20170307
  Transmission Date: 20170428
  Serious: Yes (Death)
  Sender: FDA-Public Use
  Company Number: VE-ACTELION-A-US2017-150787

PATIENT
  Age: 36 Year
  Sex: Female

DRUGS (8)
  1. OMEPRAZOLE. [Concomitant]
     Active Substance: OMEPRAZOLE
  2. FUROSEMIDE. [Concomitant]
     Active Substance: FUROSEMIDE
  3. DIGOXIN. [Concomitant]
     Active Substance: DIGOXIN
  4. SILDENAFIL. [Concomitant]
     Active Substance: SILDENAFIL
  5. SPIRONOLACTONE. [Concomitant]
     Active Substance: SPIRONOLACTONE
  6. WARFARIN [Concomitant]
     Active Substance: WARFARIN
  7. VENTAVIS [Suspect]
     Active Substance: ILOPROST
     Indication: PULMONARY ARTERIAL HYPERTENSION
     Route: 055
  8. FOLIC ACID. [Concomitant]
     Active Substance: FOLIC ACID

REACTIONS (1)
  - Death [Fatal]
